FAERS Safety Report 18408287 (Version 4)
Quarter: 2020Q4

REPORT INFORMATION
  Report Type: Spontaneous
  Country: JP (occurrence: JP)
  Receive Date: 20201020
  Receipt Date: 20201201
  Transmission Date: 20210114
  Serious: Yes (Hospitalization, Other)
  Sender: FDA-Public Use
  Company Number: JP-009507513-2010JPN001735J

PATIENT
  Age: 57 Year
  Sex: Male

DRUGS (5)
  1. MAINTATE [Concomitant]
     Active Substance: BISOPROLOL FUMARATE
     Dosage: UNK
     Route: 048
  2. REPATHA [Suspect]
     Active Substance: EVOLOCUMAB
     Indication: TYPE IIA HYPERLIPIDAEMIA
     Dosage: 210 MILLIGRAM/DAY
     Route: 058
     Dates: start: 20190129
  3. RENIVACE TABLETS 5 [Concomitant]
     Active Substance: ENALAPRIL
     Dosage: UNK
     Route: 048
  4. SUGLAT [Suspect]
     Active Substance: IPRAGLIFLOZIN L-PROLINE
     Indication: TYPE 2 DIABETES MELLITUS
     Dosage: 50 MILLIGRAM/DAY
     Route: 048
     Dates: start: 201907
  5. JANUVIA [Suspect]
     Active Substance: SITAGLIPTIN PHOSPHATE
     Indication: TYPE 2 DIABETES MELLITUS
     Dosage: 50 MILLIGRAM, QD
     Route: 048
     Dates: start: 201903

REACTIONS (2)
  - Myocardial infarction [Recovered/Resolved]
  - Vascular stenosis [Recovered/Resolved]

NARRATIVE: CASE EVENT DATE: 202001
